FAERS Safety Report 8694411 (Version 2)
Quarter: 2012Q4

REPORT INFORMATION
  Report Type: 
  Country: CN (occurrence: CN)
  Receive Date: 20120731
  Receipt Date: 20120921
  Transmission Date: 20130627
  Serious: Yes (Death, Life-Threatening, Hospitalization, Other)
  Sender: FDA-Public Use
  Company Number: CN-ROCHE-1094143

PATIENT
  Age: 56 Year
  Sex: Female

DRUGS (8)
  1. MABTHERA [Suspect]
     Indication: EXTRANODAL MARGINAL ZONE B-CELL LYMPHOMA (MALT TYPE)
     Route: 041
     Dates: start: 20111206, end: 20111206
  2. CYCLOPHOSPHAMIDE [Concomitant]
     Indication: EXTRANODAL MARGINAL ZONE B-CELL LYMPHOMA (MALT TYPE)
     Dosage: 30 drops per minute
     Route: 041
     Dates: start: 20111206, end: 20111208
  3. VINCRISTINE [Concomitant]
     Indication: EXTRANODAL MARGINAL ZONE B-CELL LYMPHOMA (MALT TYPE)
     Dosage: 30 drops per minute
     Route: 041
     Dates: start: 20111206, end: 20111206
  4. PREDNISONE [Concomitant]
     Indication: EXTRANODAL MARGINAL ZONE B-CELL LYMPHOMA (MALT TYPE)
     Route: 048
     Dates: start: 20111206, end: 20111209
  5. TROPISETRON [Concomitant]
     Indication: PROPHYLAXIS OF NAUSEA AND VOMITING
     Dosage: administrated on day 1, day 3
     Route: 041
     Dates: start: 20111206, end: 20111208
  6. ALLOPURINOL [Concomitant]
     Route: 048
     Dates: start: 20111205, end: 20111209
  7. PROMETHAZINE [Concomitant]
     Indication: PROPHYLAXIS OF NAUSEA AND VOMITING
     Route: 030
     Dates: start: 20111206, end: 20111206
  8. SODIUM BICARBONATE [Concomitant]
     Route: 048
     Dates: start: 20111205, end: 20111209

REACTIONS (9)
  - Respiratory failure [Fatal]
  - Circulatory collapse [Fatal]
  - Upper gastrointestinal haemorrhage [Recovering/Resolving]
  - Bone marrow failure [Recovering/Resolving]
  - Thrombocytopenic purpura [Not Recovered/Not Resolved]
  - Hyponatraemia [Not Recovered/Not Resolved]
  - Lung infection [Recovering/Resolving]
  - Body temperature increased [Not Recovered/Not Resolved]
  - Altered state of consciousness [Not Recovered/Not Resolved]
